FAERS Safety Report 22295436 (Version 1)
Quarter: 2023Q2

REPORT INFORMATION
  Report Type: Spontaneous
  Country: US (occurrence: None)
  Receive Date: 20230506
  Receipt Date: 20230506
  Transmission Date: 20230722
  Serious: Yes (Other)
  Sender: FDA-Public Use
  Company Number: None

PATIENT
  Age: 19 Year
  Sex: Female

DRUGS (1)
  1. CANNABIDIOL\HERBALS\MUSCIMOL [Suspect]
     Active Substance: CANNABIDIOL\HERBALS\MUSCIMOL
     Indication: Substance use
     Dosage: OTHER QUANTITY : 1 OUNCE(S);?FREQUENCY : AS NEEDED;?
     Route: 048
     Dates: start: 20230504, end: 20230505

REACTIONS (3)
  - Illness [None]
  - Vomiting [None]
  - Abdominal pain upper [None]

NARRATIVE: CASE EVENT DATE: 20230504
